FAERS Safety Report 9123009 (Version 1)
Quarter: 2013Q1

REPORT INFORMATION
  Report Type: Spontaneous
  Country: US (occurrence: None)
  Receive Date: 20130130
  Receipt Date: 20130130
  Transmission Date: 20140127
  Serious: Yes (Death)
  Sender: FDA-Public Use
  Company Number: B0859101A

PATIENT
  Age: 38 Year
  Sex: Female

DRUGS (7)
  1. BUPROPION HYDROCHLORIDE [Suspect]
     Dosage: UNK  /  UNK  /  ORAL?UNK
     Route: 048
  2. DIPHENHYDRAMINE [Suspect]
     Dosage: UNK  /  UNK  /  ORAL?UNK
     Route: 048
  3. HYDROCODONE + PARACETAMOL [Suspect]
     Dosage: UNK  /  UNK  /  ORAL?UNK
     Route: 048
  4. METAXALONE (FORMULATION UNKNOWN) (METAXALONE) [Suspect]
     Dosage: UNK  /  UNK  /  ORAL?UNK
     Route: 048
  5. TRAMADOL HYDROCHLORIDE [Suspect]
     Dosage: UNK  /  UNK  /  ORAL?UNK
     Route: 048
  6. CITALOPRAM (FORMULATION UNKNOWN) (CITALOPRAM) [Suspect]
     Dosage: UNK  /  UNK  /  ORAL?UNK
     Route: 048
  7. AMITRIPTYLINE [Suspect]
     Dosage: UNK  /  UNK  /  ORAL?UNK
     Route: 048

REACTIONS (2)
  - Drug abuse [None]
  - Cardio-respiratory arrest [None]
